FAERS Safety Report 6737941-6 (Version None)
Quarter: 2010Q2

REPORT INFORMATION
  Report Type: 
  Country: None (occurrence: None)
  Receive Date: 20100524
  Receipt Date: 20100511
  Transmission Date: 20101027
  Serious: Yes (Other)
  Sender: FDA-Public Use
  Company Number: PHHY2010IE31089

PATIENT
  Age: 65 Year
  Sex: Female

DRUGS (1)
  1. DICLOFENAC [Suspect]
     Indication: SERONEGATIVE ARTHRITIS
     Dosage: 75 MG, BID

REACTIONS (3)
  - DIARRHOEA [None]
  - GASTRITIS [None]
  - GASTROINTESTINAL DISORDER [None]
